FAERS Safety Report 20066396 (Version 14)
Quarter: 2024Q3

REPORT INFORMATION
  Report Type: Spontaneous
  Country: CA (occurrence: CA)
  Receive Date: 20211115
  Receipt Date: 20240706
  Transmission Date: 20241016
  Serious: Yes (Other)
  Sender: CELLTRION
  Company Number: CA-CELLTRION INC.-2019CA019648

PATIENT

DRUGS (51)
  1. INFLECTRA [Suspect]
     Active Substance: INFLIXIMAB-DYYB
     Indication: Crohn^s disease
     Dosage: 5 MG/KG, 2, 6 WEEKS,THEN EVERY 8 WEEKS
     Route: 042
     Dates: start: 20181018
  2. INFLECTRA [Suspect]
     Active Substance: INFLIXIMAB-DYYB
     Dosage: 5 MG/KG, 2,6 WEEKS,THEN EVERY 8 WEEKS
     Route: 042
     Dates: start: 20181102
  3. INFLECTRA [Suspect]
     Active Substance: INFLIXIMAB-DYYB
     Dosage: 5 MG/KG,  2,6 WEEKS,THEN EVERY 8 WEEKS
     Route: 042
     Dates: start: 20181128
  4. INFLECTRA [Suspect]
     Active Substance: INFLIXIMAB-DYYB
     Dosage: 5 MG/KG, 2,6 WEEKS,THEN EVERY 8 WEEKS
     Route: 042
     Dates: start: 20190121
  5. INFLECTRA [Suspect]
     Active Substance: INFLIXIMAB-DYYB
     Dosage: 5 MG/KG, 2,6 THEN EVERY 8 WEEKS)
     Route: 042
     Dates: start: 20190319
  6. INFLECTRA [Suspect]
     Active Substance: INFLIXIMAB-DYYB
     Dosage: 5 MG/KG, 2,6 THEN EVERY 8 WEEKS)
     Route: 042
     Dates: start: 20190904
  7. INFLECTRA [Suspect]
     Active Substance: INFLIXIMAB-DYYB
     Dosage: 5 MG/KG, 2,6 THEN EVERY 8 WEEKS)
     Route: 042
     Dates: start: 20191029
  8. INFLECTRA [Suspect]
     Active Substance: INFLIXIMAB-DYYB
     Dosage: 5 MG/KG, 2,6 THEN EVERY 8 WEEKS)
     Route: 042
     Dates: start: 20191220
  9. INFLECTRA [Suspect]
     Active Substance: INFLIXIMAB-DYYB
     Dosage: 5 MG/KG, 2,6 THEN EVERY 8 WEEKS)
     Route: 042
     Dates: start: 20200414
  10. INFLECTRA [Suspect]
     Active Substance: INFLIXIMAB-DYYB
     Dosage: 5 MG/KG, 2,6 THEN EVERY 8 WEEKS)
     Route: 042
     Dates: start: 20200609
  11. INFLECTRA [Suspect]
     Active Substance: INFLIXIMAB-DYYB
     Dosage: 5 MG/KG, 2,6 THEN EVERY 8 WEEKS)
     Route: 042
     Dates: start: 20200804
  12. INFLECTRA [Suspect]
     Active Substance: INFLIXIMAB-DYYB
     Dosage: 5 MG/KG, 2,6 THEN EVERY 8 WEEKS)
     Route: 042
     Dates: start: 20210125
  13. INFLECTRA [Suspect]
     Active Substance: INFLIXIMAB-DYYB
     Dosage: 5 MG/KG, 2,6 THEN EVERY 8 WEEKS)
     Route: 042
     Dates: start: 20210319
  14. INFLECTRA [Suspect]
     Active Substance: INFLIXIMAB-DYYB
     Dosage: 5 MG/KG, 2,6 THEN EVERY 8 WEEKS)
     Route: 042
     Dates: start: 20210520
  15. INFLECTRA [Suspect]
     Active Substance: INFLIXIMAB-DYYB
     Dosage: 5 MG/KG, 2,6 THEN EVERY 8 WEEKS)
     Route: 042
     Dates: start: 20210713
  16. INFLECTRA [Suspect]
     Active Substance: INFLIXIMAB-DYYB
     Dosage: 5 MG/KG, 2,6 THEN EVERY 8 WEEKS
     Route: 042
     Dates: start: 20210907
  17. INFLECTRA [Suspect]
     Active Substance: INFLIXIMAB-DYYB
     Dosage: 5 MG/KG, 2,6 THEN EVERY 8 WEEKS)
     Route: 042
     Dates: start: 20211104
  18. INFLECTRA [Suspect]
     Active Substance: INFLIXIMAB-DYYB
     Dosage: 5 MG/KG, 2,6 THEN EVERY 8 WEEKS)
     Route: 042
     Dates: start: 20211104
  19. INFLECTRA [Suspect]
     Active Substance: INFLIXIMAB-DYYB
     Dosage: 5 MG/KG, 2,6 THEN EVERY 8 WEEKS
     Route: 042
     Dates: start: 20211230
  20. INFLECTRA [Suspect]
     Active Substance: INFLIXIMAB-DYYB
     Dosage: 5 MG/KG, 2,6 THEN EVERY 8 WEEKS
     Route: 042
     Dates: start: 20220224
  21. INFLECTRA [Suspect]
     Active Substance: INFLIXIMAB-DYYB
     Dosage: 5 MG/KG, 2,6 THEN EVERY 8 WEEKS
     Route: 042
     Dates: start: 20220224
  22. INFLECTRA [Suspect]
     Active Substance: INFLIXIMAB-DYYB
     Dosage: 5 MG/KG, 2,6 THEN EVERY 8 WEEKS
     Route: 042
     Dates: start: 20220421
  23. INFLECTRA [Suspect]
     Active Substance: INFLIXIMAB-DYYB
     Dosage: 5 MG/KG, 2, 6 THEN EVERY 8 WEEKS
     Route: 042
     Dates: start: 20220617
  24. INFLECTRA [Suspect]
     Active Substance: INFLIXIMAB-DYYB
     Dosage: 5 MG/KG, 2, 6 THEN EVERY 8 WEEKS
     Route: 042
     Dates: start: 20220809
  25. INFLECTRA [Suspect]
     Active Substance: INFLIXIMAB-DYYB
     Dosage: 5 MG/KG, 2, 6 THEN EVERY 8 WEEKS
     Route: 042
     Dates: start: 20221004
  26. INFLECTRA [Suspect]
     Active Substance: INFLIXIMAB-DYYB
     Dosage: 5 MG/KG, 2, 6 THEN EVERY 8 WEEKS
     Route: 042
     Dates: start: 20221130
  27. INFLECTRA [Suspect]
     Active Substance: INFLIXIMAB-DYYB
     Dosage: 5 MG/KG, 2, 6 THEN EVERY 8 WEEKS
     Route: 042
     Dates: start: 20230206
  28. INFLECTRA [Suspect]
     Active Substance: INFLIXIMAB-DYYB
     Dosage: 225 MG, (5 MG/KG), AFTER 8 WEEKS
     Route: 042
     Dates: start: 20230404
  29. INFLECTRA [Suspect]
     Active Substance: INFLIXIMAB-DYYB
     Dosage: 225 MG, (5 MG/KG), AFTER 8 WEEKS
     Route: 042
     Dates: start: 20230404
  30. INFLECTRA [Suspect]
     Active Substance: INFLIXIMAB-DYYB
     Dosage: 225 MG, (5 MG/KG), AFTER 8 WEEKS
     Route: 042
     Dates: start: 20230531
  31. INFLECTRA [Suspect]
     Active Substance: INFLIXIMAB-DYYB
     Dosage: 5 MG/KG, 2,6 THEN EVERY 8 WEEKS)
     Route: 042
     Dates: start: 20230727
  32. INFLECTRA [Suspect]
     Active Substance: INFLIXIMAB-DYYB
     Dosage: 225 MG (5 MG/KG), 8 WEEKS
     Route: 042
     Dates: start: 20230919
  33. INFLECTRA [Suspect]
     Active Substance: INFLIXIMAB-DYYB
     Dosage: 225MG (5MG/KG), 8 WEEKS
     Route: 042
     Dates: start: 20231114
  34. INFLECTRA [Suspect]
     Active Substance: INFLIXIMAB-DYYB
     Dosage: 225MG (5MG/KG), 8 WEEKS
     Route: 042
     Dates: start: 20240430
  35. INFLECTRA [Suspect]
     Active Substance: INFLIXIMAB-DYYB
     Dosage: 225 MG, AFTER 8 WEEKS AND 2 DAYS( 5 MG/KG, AT WEEK 2, 6, THEN EVERY 8 WEEKS)
     Route: 042
     Dates: start: 20240627
  36. SULFAMETHOXAZOLE\TRIMETHOPRIM [Concomitant]
     Active Substance: SULFAMETHOXAZOLE\TRIMETHOPRIM
     Dosage: 1 DF, 80-400 MG 1 TABLET  3 TIMES A WEEK
     Route: 048
  37. SULFAMETHOXAZOLE\TRIMETHOPRIM [Concomitant]
     Active Substance: SULFAMETHOXAZOLE\TRIMETHOPRIM
     Dosage: 400 MG (80-400 MG 1 TABLET 3 TIMES A WEEK)
     Route: 048
  38. HERBALS\TURMERIC [Concomitant]
     Active Substance: HERBALS\TURMERIC
     Dosage: UNK, AS NEEDED DOSAGE NOT AVAILABLE
     Route: 048
  39. HERBALS\TURMERIC [Concomitant]
     Active Substance: HERBALS\TURMERIC
     Dosage: 1 DF, DOSAGE NOT AVAILABLE
     Route: 048
  40. CHOLECALCIFEROL [Concomitant]
     Active Substance: CHOLECALCIFEROL
     Dosage: 10000 IU, WEEKLY
     Route: 048
  41. FOLIC ACID [Concomitant]
     Active Substance: FOLIC ACID
     Dosage: UNK, WEEKLY
     Route: 048
  42. MAGNESIUM [Concomitant]
     Active Substance: MAGNESIUM
     Dosage: 250 MG
     Route: 048
  43. METHOTREXATE [Concomitant]
     Active Substance: METHOTREXATE
     Dosage: 10 MG, WEEKLY, 2.5 MG/TABLET, 4 TABLETS
     Route: 048
     Dates: start: 20181018, end: 201812
  44. METHOTREXATE [Concomitant]
     Active Substance: METHOTREXATE
     Dosage: 1 DF
  45. METOCLOPRAMIDE [Concomitant]
     Active Substance: METOCLOPRAMIDE
     Dosage: 2 DF,5 MG 2 TABLETS 1 HOUR PRIOR TO METHOTREXATE
     Route: 048
  46. METOCLOPRAMIDE [Concomitant]
     Active Substance: METOCLOPRAMIDE
     Dosage: 5 MG, WEEKLY / (5 MG 2 TABLETS 1 HOUR PRIOR TO METHOTREXATE)
     Route: 048
  47. PREDNISONE [Concomitant]
     Active Substance: PREDNISONE
     Dosage: UNK DOSAGE NOT AVAILABLETAPERING DOSE FOR 6 WEEKS
     Dates: start: 20181018
  48. PREDNISONE [Concomitant]
     Active Substance: PREDNISONE
     Dosage: 1 DF, DOSAGE NOT AVAILABLETAPERING DOSE FOR 6 WEEKS
     Route: 065
     Dates: start: 20181018
  49. RAMIPRIL [Concomitant]
     Active Substance: RAMIPRIL
     Dosage: 25 MG
  50. SANDOZ FOLIC ACID [Concomitant]
     Dosage: 1 DF, WEEKLY DOSAGE NOT AVAILABLE
     Route: 049
  51. SERTRALINE [Concomitant]
     Active Substance: SERTRALINE HYDROCHLORIDE
     Dosage: 25 MG

REACTIONS (29)
  - Blood pressure fluctuation [Unknown]
  - Condition aggravated [Unknown]
  - Condition aggravated [Not Recovered/Not Resolved]
  - Nasopharyngitis [Recovering/Resolving]
  - Productive cough [Recovering/Resolving]
  - Oral herpes [Unknown]
  - Pain [Unknown]
  - Arthralgia [Not Recovered/Not Resolved]
  - Erythema nodosum [Unknown]
  - Anal fissure [Unknown]
  - Eye inflammation [Not Recovered/Not Resolved]
  - Haemorrhoids [Recovered/Resolved]
  - Mental disorder [Not Recovered/Not Resolved]
  - Gastrointestinal disorder [Unknown]
  - Abdominal distension [Unknown]
  - Abdominal discomfort [Unknown]
  - Balance disorder [Unknown]
  - Psychiatric symptom [Unknown]
  - Crying [Unknown]
  - Disturbance in attention [Unknown]
  - Memory impairment [Unknown]
  - Apathy [Unknown]
  - Mouth ulceration [Unknown]
  - Dizziness [Not Recovered/Not Resolved]
  - Asthenia [Not Recovered/Not Resolved]
  - Photopsia [Not Recovered/Not Resolved]
  - Hypertension [Unknown]
  - Oral mucosal eruption [Not Recovered/Not Resolved]
  - Inappropriate schedule of product administration [Unknown]

NARRATIVE: CASE EVENT DATE: 20190101
